FAERS Safety Report 8824634 (Version 2)
Quarter: 2013Q1

REPORT INFORMATION
  Report Type: Report from Study
  Country: JP (occurrence: JP)
  Receive Date: 20121004
  Receipt Date: 20130219
  Transmission Date: 20140127
  Serious: Yes (Hospitalization)
  Sender: FDA-Public Use
  Company Number: PHHY2012JP086378

PATIENT
  Age: 55 Year
  Sex: Male

DRUGS (9)
  1. AMN107 [Suspect]
     Indication: CHRONIC MYELOID LEUKAEMIA
     Dosage: 800 MG, DAILY
     Route: 048
     Dates: start: 20090831, end: 20120603
  2. AMN107 [Suspect]
     Dosage: 800 MG, DAILY
     Route: 048
     Dates: start: 20120615
  3. FLOMOX [Suspect]
     Indication: INFECTION PROPHYLAXIS
     Dosage: 300 MG, DAILY
     Route: 048
     Dates: start: 20120528, end: 20120603
  4. PREDONINE [Concomitant]
     Dosage: 40 MG, UNK
     Dates: start: 20120604
  5. PREDONINE [Concomitant]
     Dosage: 30 MG, UNK
  6. PREDONINE [Concomitant]
     Dosage: 20 MG, UNK
     Dates: start: 20120620
  7. PREDONINE [Concomitant]
     Dosage: 15 MG, UNK
     Dates: start: 20120625
  8. PREDONINE [Concomitant]
     Dosage: 10 MG, UNK
     Dates: start: 20120702
  9. PREDONINE [Concomitant]
     Dosage: 5 MG, UNK
     Dates: start: 20120709

REACTIONS (2)
  - Eosinophilic pneumonia [Recovered/Resolved]
  - Dental caries [Unknown]
